FAERS Safety Report 9664629 (Version 1)
Quarter: 2013Q4

REPORT INFORMATION
  Report Type: Spontaneous
  Country: US (occurrence: None)
  Receive Date: 20131031
  Receipt Date: 20131031
  Transmission Date: 20140711
  Serious: Yes (Life-Threatening)
  Sender: FDA-Public Use
  Company Number: None

PATIENT
  Age: 17 None
  Sex: 0
  Weight: 50.8 kg

DRUGS (2)
  1. THORAZINE [Suspect]
     Indication: TENSION
     Dates: start: 1971
  2. THORAZINE [Suspect]
     Indication: ANXIETY
     Dates: start: 1971

REACTIONS (1)
  - Victim of sexual abuse [None]
